FAERS Safety Report 5903223-5 (Version None)
Quarter: 2008Q3

REPORT INFORMATION
  Report Type: 
  Country: None (occurrence: None)
  Receive Date: 20080930
  Receipt Date: 20080926
  Transmission Date: 20090109
  Serious: Yes (Death)
  Sender: FDA-Public Use
  Company Number: A0749902A

PATIENT
  Age: 58 Year
  Sex: Male

DRUGS (1)
  1. NICODERM [Suspect]
     Dosage: 1PAT SINGLE DOSE
     Route: 062
     Dates: start: 20080905, end: 20080905

REACTIONS (1)
  - CEREBROVASCULAR ACCIDENT [None]
